FAERS Safety Report 8439651-6 (Version None)
Quarter: 2012Q2

REPORT INFORMATION
  Report Type: 
  Country: None (occurrence: None)
  Receive Date: 20120615
  Receipt Date: 20120613
  Transmission Date: 20120825
  Serious: Yes (Death)
  Sender: FDA-Public Use
  Company Number: US-B.I. PHARMACEUTICALS,INC./RIDGEFIELD-2012-BP-13602BP

PATIENT
  Age: 82 Year
  Sex: Female

DRUGS (2)
  1. TRADJENTA [Suspect]
     Indication: RENAL FUNCTION TEST ABNORMAL
  2. TRADJENTA [Suspect]
     Indication: GLYCOSYLATED HAEMOGLOBIN INCREASED
     Dosage: 5 MG

REACTIONS (3)
  - GALLBLADDER DISORDER [None]
  - EMBOLISM [None]
  - THROMBOSIS [None]
